FAERS Safety Report 5542521-4 (Version None)
Quarter: 2007Q4

REPORT INFORMATION
  Report Type: 
  Country: None (occurrence: None)
  Receive Date: 20071123
  Receipt Date: 20070420
  Transmission Date: 20080405
  Serious: Yes (Other)
  Sender: FDA-Public Use
  Company Number: US-JNJFOC-20070405491

PATIENT
  Sex: Female

DRUGS (3)
  1. LEVAQUIN [Suspect]
     Indication: DRUG USE FOR UNKNOWN INDICATION
     Dosage: TREATMENT COURSE 5 DAYS
  2. DIABETIC MEDICATION (DRUG USED IN DIABETES) UNSPECIFIED [Concomitant]
  3. METFORMIN (METFORMIN) UNSPECIFIED [Concomitant]

REACTIONS (1)
  - HYPERGLYCAEMIA [None]
